FAERS Safety Report 9697464 (Version 2)
Quarter: 2013Q4

REPORT INFORMATION
  Report Type: Report from Study
  Country: VE (occurrence: VE)
  Receive Date: 20131120
  Receipt Date: 20131120
  Transmission Date: 20140711
  Serious: Yes (Hospitalization)
  Sender: FDA-Public Use
  Company Number: PHHY2013VE127436

PATIENT
  Age: 67 Year
  Sex: Female

DRUGS (3)
  1. ACLASTA [Suspect]
     Indication: OSTEOPOROSIS
     Dosage: 5 MG, ANNUALLY
     Route: 042
     Dates: start: 20110511
  2. ACLASTA [Suspect]
     Dosage: 5 MG, ANNUALLY
     Route: 042
     Dates: start: 20121024
  3. CO-ENZYME Q10 [Concomitant]
     Dosage: UNK
     Route: 048

REACTIONS (3)
  - Hernial eventration [Recovering/Resolving]
  - Giardiasis [Recovered/Resolved]
  - Dizziness [Recovered/Resolved]
